FAERS Safety Report 19475929 (Version 1)
Quarter: 2021Q2

REPORT INFORMATION
  Report Type: Spontaneous
  Country: US (occurrence: US)
  Receive Date: 20210630
  Receipt Date: 20210630
  Transmission Date: 20210717
  Serious: Yes (Hospitalization)
  Sender: FDA-Public Use
  Company Number: US-TEVA-2021-US-1927139

PATIENT
  Age: 16 Year
  Sex: Male
  Weight: 91.63 kg

DRUGS (5)
  1. DEPAKOTE [Concomitant]
     Active Substance: DIVALPROEX SODIUM
  2. OLANZAPINE. [Concomitant]
     Active Substance: OLANZAPINE
  3. LITHIUM. [Concomitant]
     Active Substance: LITHIUM
  4. CLOZAPINE TEVA [Suspect]
     Active Substance: CLOZAPINE
     Indication: AGGRESSION
  5. CLOZAPINE TEVA [Suspect]
     Active Substance: CLOZAPINE
     Indication: SCHIZOAFFECTIVE DISORDER BIPOLAR TYPE
     Dosage: 600 MILLIGRAM DAILY;
     Route: 065

REACTIONS (12)
  - Tangentiality [Unknown]
  - Insomnia [Unknown]
  - Irritability [Unknown]
  - Impulsive behaviour [Unknown]
  - Intrusive thoughts [Unknown]
  - Paranoia [Unknown]
  - Off label use [Unknown]
  - Product dose omission issue [Unknown]
  - Mood swings [Unknown]
  - Agitation [Unknown]
  - Withdrawal syndrome [Unknown]
  - Abnormal behaviour [Unknown]

NARRATIVE: CASE EVENT DATE: 202106
